FAERS Safety Report 9543585 (Version 1)
Quarter: 2013Q2

REPORT INFORMATION
  Report Type: Spontaneous
  Country: US (occurrence: None)
  Receive Date: 20130524
  Receipt Date: 20130524
  Transmission Date: 20140414
  Serious: Yes (Other)
  Sender: FDA-Public Use
  Company Number: PHEH2013US001547

PATIENT
  Age: 38 Year
  Sex: Female

DRUGS (3)
  1. GILENYA [Suspect]
     Indication: MULTIPLE SCLEROSIS
     Route: 048
     Dates: start: 20130117
  2. ASPIRIN (ACETYLSALICYLIC ACID) [Concomitant]
  3. METHOCARBAMOL [Concomitant]

REACTIONS (3)
  - Chest discomfort [None]
  - Chest pain [None]
  - Dyspnoea [None]
